FAERS Safety Report 15558907 (Version 4)
Quarter: 2018Q4

REPORT INFORMATION
  Report Type: Spontaneous
  Country: US (occurrence: US)
  Receive Date: 20181029
  Receipt Date: 20181214
  Transmission Date: 20190205
  Serious: Yes (Hospitalization)
  Sender: FDA-Public Use
  Company Number: US-JNJFOC-20181018942

PATIENT
  Age: 79 Year
  Sex: Female
  Weight: 58.97 kg

DRUGS (22)
  1. ATORVASTATIN [Concomitant]
     Active Substance: ATORVASTATIN
     Indication: BLOOD CHOLESTEROL
     Dosage: WITH BREAKFAST
     Route: 065
     Dates: start: 2014
  2. DILTIAZEM. [Concomitant]
     Active Substance: DILTIAZEM
     Indication: BLOOD PRESSURE MEASUREMENT
     Route: 048
     Dates: start: 20181005
  3. DORZOLAMIDE TIMOLOL [Concomitant]
     Active Substance: DORZOLAMIDE
     Indication: GLAUCOMA
     Route: 047
  4. CALCIUM [Concomitant]
     Active Substance: CALCIUM
     Dosage: TAKEN SEVERAL YEARS
     Route: 065
  5. TYLENOL [Concomitant]
     Active Substance: ACETAMINOPHEN
     Indication: ARTHRITIS
     Dosage: MOST NIGHTS AND WITH BREAKFAST
     Route: 065
  6. ZINC. [Concomitant]
     Active Substance: ZINC
     Route: 065
  7. MAGNESIUM [Concomitant]
     Active Substance: MAGNESIUM
     Dosage: TAKEN SEVERAL YEARS
     Route: 065
  8. MSM [Concomitant]
     Active Substance: DIMETHYL SULFONE
     Indication: ARTHRITIS
     Dosage: TAKEN SEVERAL YEARS
     Route: 065
  9. VITAMIN C [Concomitant]
     Active Substance: ASCORBIC ACID
     Dosage: TAKEN SEVERAL YEARS
     Route: 065
  10. VITAMIN D3 [Concomitant]
     Active Substance: CHOLECALCIFEROL
     Dosage: ONCE OR TWICE DAILY
     Route: 065
  11. LUTEIN [Concomitant]
     Active Substance: LUTEIN
     Indication: EYE DISORDER
     Route: 065
  12. COREG [Concomitant]
     Active Substance: CARVEDILOL
     Dosage: WITH BREAKFAST  AND SUPPER
     Route: 048
     Dates: start: 2014
  13. LYCOPENE [Concomitant]
     Active Substance: LYCOPENE
     Indication: NEOPLASM PROPHYLAXIS
     Dosage: TAKEN FOR SEVERAL YEARS
     Route: 065
  14. GLUCOSAMINE [Concomitant]
     Active Substance: GLUCOSAMINE
     Indication: ARTHRITIS
     Dosage: TAKEN SEVERAL YEARS
     Route: 065
  15. COQ10 [Concomitant]
     Active Substance: UBIDECARENONE
     Indication: ARTHRITIS
     Dosage: TAKEN SEVERAL YEARS
     Route: 065
  16. XARELTO [Suspect]
     Active Substance: RIVAROXABAN
     Indication: ATRIAL FIBRILLATION
     Route: 048
     Dates: start: 20181006, end: 20181010
  17. COBALAMIN [Concomitant]
     Active Substance: COBALAMIN
     Dosage: TAKEN SEVERAL YEARS
     Route: 065
  18. VITAMIN C [Concomitant]
     Active Substance: ASCORBIC ACID
     Route: 065
  19. TYLENOL [Concomitant]
     Active Substance: ACETAMINOPHEN
     Indication: SLEEP DISORDER THERAPY
     Dosage: MOST NIGHTS AND WITH BREAKFAST
     Route: 065
  20. CHONDROITIN [Concomitant]
     Active Substance: CHONDROITIN
     Indication: ARTHRITIS
     Dosage: TAKEN SEVERAL YEARS
     Route: 065
  21. XARELTO [Suspect]
     Active Substance: RIVAROXABAN
     Indication: CEREBROVASCULAR ACCIDENT PROPHYLAXIS
     Route: 048
     Dates: start: 20181006, end: 20181010
  22. LATANOPROST. [Concomitant]
     Active Substance: LATANOPROST
     Indication: GLAUCOMA
     Dosage: TAKEN SEVERAL YEARS
     Route: 047

REACTIONS (2)
  - Gingival bleeding [Recovered/Resolved]
  - Haemorrhage [Recovered/Resolved]

NARRATIVE: CASE EVENT DATE: 20181010
